FAERS Safety Report 16549241 (Version 1)
Quarter: 2019Q3

REPORT INFORMATION
  Report Type: Spontaneous
  Country: GB (occurrence: GB)
  Receive Date: 20190709
  Receipt Date: 20190709
  Transmission Date: 20191004
  Serious: Yes (Death, Life-Threatening, Hospitalization, Disabling, Other)
  Sender: FDA-Public Use
  Company Number: GB-BAXTER-2019BAX013190

PATIENT
  Sex: Male

DRUGS (1)
  1. BUPIVACAINE-CLARIS 5MG/ML SOLUTION FOR INJECTION [Suspect]
     Active Substance: BUPIVACAINE HYDROCHLORIDE
     Indication: INTENTIONAL OVERDOSE
     Route: 037

REACTIONS (5)
  - Loss of consciousness [Not Recovered/Not Resolved]
  - Cardiotoxicity [Not Recovered/Not Resolved]
  - Local anaesthetic systemic toxicity [Fatal]
  - Neurotoxicity [Not Recovered/Not Resolved]
  - Intentional overdose [Not Recovered/Not Resolved]
